FAERS Safety Report 7978549-4 (Version None)
Quarter: 2011Q4

REPORT INFORMATION
  Report Type: 
  Country: None (occurrence: None)
  Receive Date: 20111129
  Receipt Date: 20110914
  Transmission Date: 20120403
  Serious: No
  Sender: FDA-Public Use
  Company Number: PHEH2011US04309

PATIENT
  Sex: Male

DRUGS (1)
  1. AFINITOR [Suspect]
     Indication: MALIGNANT URINARY TRACT NEOPLASM
     Dosage: 10 MG DAILY, ORAL
     Route: 048
     Dates: start: 20110807, end: 20110902

REACTIONS (2)
  - SURGERY [None]
  - NO ADVERSE EVENT [None]
